FAERS Safety Report 8843880 (Version 1)
Quarter: 2012Q4

REPORT INFORMATION
  Report Type: 
  Country: US (occurrence: US)
  Receive Date: 20121016
  Receipt Date: 20121016
  Transmission Date: 20130627
  Serious: Yes (Hospitalization, Disabling, Other)
  Sender: FDA-Public Use
  Company Number: US-009507513-2011SP056193

PATIENT

DRUGS (2)
  1. NUVARING [Suspect]
     Indication: CONTRACEPTION
     Dosage: UNK
     Dates: start: 2004
  2. NUVARING [Suspect]
     Dosage: UNK
     Dates: start: 200609, end: 20081222

REACTIONS (19)
  - Squamous cell carcinoma [Unknown]
  - Renal failure acute [Recovered/Resolved]
  - Dehydration [Recovered/Resolved]
  - Ligament rupture [Unknown]
  - Pulmonary embolism [Recovered/Resolved]
  - Deep vein thrombosis [Recovering/Resolving]
  - Anxiety [Unknown]
  - Mental disorder [Unknown]
  - Hypertension [Not Recovered/Not Resolved]
  - Vulvar dysplasia [Unknown]
  - Cervical dysplasia [Unknown]
  - Staphylococcal infection [Unknown]
  - Chloasma [Unknown]
  - Cyst [Unknown]
  - Premenstrual syndrome [Recovering/Resolving]
  - Fungal infection [Unknown]
  - Vulvovaginal candidiasis [Unknown]
  - Ligament operation [Unknown]
  - Arthroscopy [Recovered/Resolved]
